FAERS Safety Report 5378265-1 (Version None)
Quarter: 2007Q2

REPORT INFORMATION
  Report Type: 
  Country: None (occurrence: None)
  Receive Date: 20070625
  Receipt Date: 20070608
  Transmission Date: 20071010
  Serious: Yes (Other)
  Sender: FDA-Public Use
  Company Number: THYM-11461

PATIENT
  Age: 53 Year
  Sex: Female
  Weight: 81 kg

DRUGS (12)
  1. THYMOGLOBULIN [Suspect]
     Indication: RENAL TRANSPLANT
     Dosage: 10 MG QD IV
     Route: 042
     Dates: start: 20070522, end: 20070522
  2. THYMOGLOBULIN [Suspect]
     Indication: RENAL TRANSPLANT
     Dosage: 50 MG QOD IV
     Route: 042
     Dates: start: 20070523, end: 20070525
  3. SIMULECT [Concomitant]
  4. METHYLPREDNISOLONE [Concomitant]
  5. MYCOPHENOLATE MOFETIL [Concomitant]
  6. FAMOTIDINE [Concomitant]
  7. DOCUSATE [Concomitant]
  8. VANCOMYCIN [Concomitant]
  9. PIPERACILLIN AND TAZOBACTAM [Concomitant]
  10. GANCICLOVIR [Concomitant]
  11. SEPTRA [Concomitant]
  12. NYSTATIN [Concomitant]

REACTIONS (11)
  - CHILLS [None]
  - COMPLICATIONS OF TRANSPLANTED KIDNEY [None]
  - CYTOKINE RELEASE SYNDROME [None]
  - DRUG HYPERSENSITIVITY [None]
  - DYSPNOEA [None]
  - HYPERTENSION [None]
  - HYPOTENSION [None]
  - OXYGEN SATURATION DECREASED [None]
  - PYREXIA [None]
  - RENAL CORTICAL NECROSIS [None]
  - SINUS TACHYCARDIA [None]
